FAERS Safety Report 4576249-4 (Version None)
Quarter: 2005Q1

REPORT INFORMATION
  Report Type: 
  Country: None (occurrence: None)
  Receive Date: 20050119
  Receipt Date: 20041110
  Transmission Date: 20050727
  Serious: Yes (Other)
  Sender: FDA-Public Use
  Company Number: A03200403809

PATIENT
  Age: 89 Year
  Sex: Female
  Weight: 54.4316 kg

DRUGS (11)
  1. PLAVIX [Suspect]
     Indication: CORONARY ARTERIAL STENT INSERTION
     Dosage: 75 MG QD - ORAL
     Route: 048
     Dates: start: 20010101
  2. ACETYLSALICYLIC ACID [Concomitant]
  3. ISOSORBIDE [Concomitant]
  4. BENAZEPRIL HCL [Concomitant]
  5. FUROSEMIDE [Concomitant]
  6. METOPROLOL [Concomitant]
  7. ATORVASTATIN [Concomitant]
  8. LANSOPRAZOLE [Concomitant]
  9. VITAMINS NOS [Concomitant]
  10. MESALAMINE [Concomitant]
  11. INSULIN [Concomitant]

REACTIONS (3)
  - GASTRITIS [None]
  - HAEMORRHOIDAL HAEMORRHAGE [None]
  - INTESTINAL HAEMORRHAGE [None]
